FAERS Safety Report 5322697-4 (Version None)
Quarter: 2007Q2

REPORT INFORMATION
  Report Type: 
  Country: None (occurrence: None)
  Receive Date: 20070507
  Receipt Date: 20070427
  Transmission Date: 20071010
  Serious: Yes (Other)
  Sender: FDA-Public Use
  Company Number: 2007SP007468

PATIENT
  Age: 67 Year
  Sex: Female
  Weight: 76.2043 kg

DRUGS (1)
  1. CLARITIN [Suspect]
     Indication: SEASONAL ALLERGY
     Dosage: 1 DF;ONCE;PO
     Route: 048
     Dates: start: 20070406, end: 20070406

REACTIONS (5)
  - ASTHENIA [None]
  - DYSPNOEA [None]
  - LIP SWELLING [None]
  - NAUSEA [None]
  - OEDEMA MOUTH [None]
